FAERS Safety Report 13640881 (Version 2)
Quarter: 2018Q2

REPORT INFORMATION
  Report Type: Spontaneous
  Country: US (occurrence: US)
  Receive Date: 20170612
  Receipt Date: 20180521
  Transmission Date: 20180711
  Serious: No
  Sender: FDA-Public Use
  Company Number: US-TEVA-738198ACC

PATIENT
  Sex: Male

DRUGS (5)
  1. TESTOSTERONE GEL 1% [Suspect]
     Active Substance: TESTOSTERONE
     Route: 061
     Dates: start: 201701
  2. TESTOSTERONE GEL 1% [Suspect]
     Active Substance: TESTOSTERONE
     Route: 061
     Dates: start: 20170109
  3. TESTOSTERONE GEL 1% [Suspect]
     Active Substance: TESTOSTERONE
     Indication: BLOOD TESTOSTERONE DECREASED
     Dosage: ONE AND A HALF PACKS, ONCE DAILY
     Route: 061
     Dates: start: 201512
  4. TESTOSTERONE GEL 1% [Suspect]
     Active Substance: TESTOSTERONE
     Dates: start: 201601
  5. GLUCOSAMINE [Concomitant]
     Active Substance: GLUCOSAMINE

REACTIONS (4)
  - Arthralgia [Not Recovered/Not Resolved]
  - Acne [Not Recovered/Not Resolved]
  - Arthralgia [Not Recovered/Not Resolved]
  - Arthritis [Not Recovered/Not Resolved]

NARRATIVE: CASE EVENT DATE: 2016
